FAERS Safety Report 11073250 (Version 2)
Quarter: 2015Q3

REPORT INFORMATION
  Report Type: Report from Study
  Country: DE (occurrence: DE)
  Receive Date: 20150428
  Receipt Date: 20150803
  Transmission Date: 20151125
  Serious: Yes (Hospitalization, Other)
  Sender: FDA-Public Use
  Company Number: DE-ABBVIE-15K-062-1380480-00

PATIENT
  Sex: Female

DRUGS (1)
  1. HUMIRA [Suspect]
     Active Substance: ADALIMUMAB
     Indication: RHEUMATOID ARTHRITIS
     Route: 058
     Dates: start: 201201

REACTIONS (3)
  - Hip arthroplasty [Unknown]
  - Joint dislocation postoperative [Unknown]
  - Joint dislocation postoperative [Unknown]

NARRATIVE: CASE EVENT DATE: 201409
